FAERS Safety Report 4570560-9 (Version None)
Quarter: 2005Q1

REPORT INFORMATION
  Report Type: 
  Country: None (occurrence: None)
  Receive Date: 20050202
  Receipt Date: 20050120
  Transmission Date: 20050727
  Serious: No
  Sender: FDA-Public Use
  Company Number: 2005-BP-00911RO

PATIENT
  Age: 56 Year
  Sex: Female

DRUGS (4)
  1. CYCLOPHOSPHAMIDE [Suspect]
     Indication: BREAST CANCER
     Dosage: 5 CYCLES
  2. METHOTREXATE [Suspect]
     Indication: BREAST CANCER
     Dosage: 5 CYCLES
  3. FLUOROURACIL [Suspect]
     Indication: BREAST CANCER
     Dosage: 087.5 MG IV ALT 1W/3W INTERVALS- 5 CYCLES, IV
     Route: 042
  4. TAMOXIFEN (TAMOXIFEN) [Suspect]
     Indication: BREAST CANCER

REACTIONS (8)
  - ARTERIAL BYPASS OPERATION [None]
  - ARTERIAL OCCLUSIVE DISEASE [None]
  - CYANOSIS [None]
  - PAIN IN EXTREMITY [None]
  - PERIPHERAL COLDNESS [None]
  - PERIPHERAL VASCULAR DISORDER [None]
  - PULSE ABSENT [None]
  - TOE AMPUTATION [None]
